FAERS Safety Report 24289980 (Version 1)
Quarter: 2024Q3

REPORT INFORMATION
  Report Type: Spontaneous
  Country: SE (occurrence: None)
  Receive Date: 20240906
  Receipt Date: 20240906
  Transmission Date: 20241016
  Serious: Yes (Other)
  Sender: ASTRAZENECA
  Company Number: 2024A201720

PATIENT
  Age: 60 Year
  Sex: Female
  Weight: 50 kg

DRUGS (12)
  1. BUDESONIDE\FORMOTEROL\GLYCOPYRRONIUM [Suspect]
     Active Substance: BUDESONIDE\FORMOTEROL\GLYCOPYRRONIUM
     Indication: Chronic obstructive pulmonary disease
     Dosage: 2UG/INHAL EVERY 12 HOURS
     Route: 055
     Dates: start: 20240522, end: 20240815
  2. CALCIUM CARBONATE [Concomitant]
     Active Substance: CALCIUM CARBONATE
     Indication: Osteogenesis imperfecta
     Dosage: 500MG/800IE 1X1
  3. ACLASTA [Concomitant]
     Active Substance: ZOLEDRONIC ACID
     Indication: Osteogenesis imperfecta
  4. BISOPROLOL [Concomitant]
     Active Substance: BISOPROLOL\BISOPROLOL FUMARATE
     Indication: Cardiac disorder
  5. ENALAPRIL [Concomitant]
     Active Substance: ENALAPRIL
     Indication: Cardiac disorder
  6. MAGNESIUM [Concomitant]
     Active Substance: MAGNESIUM
     Indication: Muscle spasms
  7. CAMPRAL [Concomitant]
     Active Substance: ACAMPROSATE CALCIUM
     Indication: Alcoholic
  8. NALTREXONE [Concomitant]
     Active Substance: NALTREXONE
     Indication: Alcoholic
  9. TRIMEPRAZINE [Concomitant]
     Active Substance: TRIMEPRAZINE
     Indication: Anxiety
     Dosage: 0.5 ML IF NECESSARY UNCLEAR HOW MUCH SHE USES40MG/ML
  10. OXYCONTIN [Concomitant]
     Active Substance: OXYCODONE HYDROCHLORIDE
     Indication: Pain
  11. COMBIVENT [Concomitant]
     Active Substance: ALBUTEROL SULFATE\IPRATROPIUM BROMIDE
  12. ROSUVASTATIN [Concomitant]
     Active Substance: ROSUVASTATIN\ROSUVASTATIN CALCIUM
     Indication: Cardiac disorder

REACTIONS (2)
  - Seizure [Unknown]
  - Muscle spasms [Recovered/Resolved]

NARRATIVE: CASE EVENT DATE: 20240522
